FAERS Safety Report 9898957 (Version 1)
Quarter: 2014Q1

REPORT INFORMATION
  Report Type: Spontaneous
  Country: US (occurrence: US)
  Receive Date: 20140214
  Receipt Date: 20140214
  Transmission Date: 20141002
  Serious: Yes (Life-Threatening, Disabling)
  Sender: FDA-Public Use
  Company Number: US-GLAXOSMITHKLINE-A1060296A

PATIENT
  Age: 70 Year
  Sex: Male

DRUGS (5)
  1. AVODART [Suspect]
     Indication: PROSTATOMEGALY
     Dosage: .5MG PER DAY
     Route: 048
     Dates: start: 200909, end: 20130912
  2. FLOMAX [Concomitant]
  3. CALCIUM CHANNEL BLOCKER [Concomitant]
  4. BETA BLOCKER [Concomitant]
  5. CONCURRENT MEDICATIONS [Concomitant]

REACTIONS (6)
  - Prostate cancer [Not Recovered/Not Resolved]
  - Prostate ablation [Unknown]
  - Breast enlargement [Not Recovered/Not Resolved]
  - Erectile dysfunction [Not Recovered/Not Resolved]
  - Prostatic specific antigen increased [Not Recovered/Not Resolved]
  - Biopsy prostate [Not Recovered/Not Resolved]
